FAERS Safety Report 7156304-5 (Version None)
Quarter: 2010Q4

REPORT INFORMATION
  Report Type: 
  Country: None (occurrence: None)
  Receive Date: 20101123
  Receipt Date: 20100804
  Transmission Date: 20110411
  Serious: Yes (Hospitalization)
  Sender: FDA-Public Use
  Company Number: 015142

PATIENT
  Sex: Female
  Weight: 68 kg

DRUGS (5)
  1. CIMZIA [Suspect]
     Indication: CROHN'S DISEASE
     Dosage: 200 MG 1X/2 WEEKS; SUBCUTANEOUS
     Route: 058
     Dates: start: 20090515
  2. IMURAN [Concomitant]
  3. LIBRAX [Concomitant]
  4. TOPROL-XL [Concomitant]
  5. PREGLANDIN [Concomitant]

REACTIONS (4)
  - ABDOMINAL DISTENSION [None]
  - ABDOMINAL PAIN [None]
  - INTESTINAL OBSTRUCTION [None]
  - MUSCLE SPASMS [None]
